FAERS Safety Report 11620728 (Version 1)
Quarter: 2015Q4

REPORT INFORMATION
  Report Type: Report from Study
  Country: CA (occurrence: CA)
  Receive Date: 20151012
  Receipt Date: 20151012
  Transmission Date: 20160304
  Serious: Yes (Death)
  Sender: FDA-Public Use
  Company Number: CA-INCYTE CORPORATION-2014IN001597

PATIENT
  Sex: Male

DRUGS (5)
  1. TICLOPIDINE [Concomitant]
     Active Substance: TICLOPIDINE
     Dosage: UNK
     Route: 065
  2. JAKAFI [Suspect]
     Active Substance: RUXOLITINIB
     Dosage: 20 MG, BID
     Route: 048
  3. JAKAFI [Suspect]
     Active Substance: RUXOLITINIB
     Indication: MYELOFIBROSIS
     Dosage: 15 MG, BID
     Route: 048
     Dates: start: 20140217
  4. TICLOPIDINE [Concomitant]
     Active Substance: TICLOPIDINE
     Indication: PRODUCT USED FOR UNKNOWN INDICATION
     Dosage: UNKNOWN
  5. TICLOPIDINE [Concomitant]
     Active Substance: TICLOPIDINE
     Dosage: UNK
     Route: 065

REACTIONS (3)
  - Death [Fatal]
  - Drug ineffective [Unknown]
  - Diarrhoea [Unknown]
